FAERS Safety Report 4563312-7 (Version None)
Quarter: 2005Q1

REPORT INFORMATION
  Report Type: 
  Country: None (occurrence: None)
  Receive Date: 20050128
  Receipt Date: 20031216
  Transmission Date: 20050727
  Serious: No
  Sender: FDA-Public Use
  Company Number: US-GLAXOSMITHKLINE-A0444037A

PATIENT
  Age: 13 Year
  Sex: Female

DRUGS (2)
  1. WELLBUTRIN [Suspect]
     Indication: DEPRESSION
     Dosage: 75MG PER DAY
     Route: 048
     Dates: start: 20031206, end: 20031211
  2. BUPROPION HCL [Suspect]
     Indication: DEPRESSION
     Dosage: 75MG PER DAY
     Route: 048
     Dates: start: 20031206, end: 20031211

REACTIONS (10)
  - BACK PAIN [None]
  - DIARRHOEA [None]
  - EYE PAIN [None]
  - HYPOMANIA [None]
  - INCREASED APPETITE [None]
  - NIGHTMARE [None]
  - PAIN IN JAW [None]
  - PHARYNGOLARYNGEAL PAIN [None]
  - PYREXIA [None]
  - SWELLING FACE [None]
